FAERS Safety Report 16095732 (Version 1)
Quarter: 2019Q2

REPORT INFORMATION
  Report Type: Spontaneous
  Country: US (occurrence: US)
  Receive Date: 20190320
  Receipt Date: 20190320
  Transmission Date: 20190711
  Serious: No
  Sender: FDA-Public Use
  Company Number: None

PATIENT
  Age: 70 Year
  Sex: Female
  Weight: 60.3 kg

DRUGS (3)
  1. NORVASC [Concomitant]
     Active Substance: AMLODIPINE BESYLATE
  2. LOSARTAN. [Concomitant]
     Active Substance: LOSARTAN
  3. LEVOFLOXACIN. [Suspect]
     Active Substance: LEVOFLOXACIN
     Indication: URINARY TRACT INFECTION
     Dosage: ?          QUANTITY:1 TABLET(S);?
     Route: 048

REACTIONS (7)
  - Tremor [None]
  - Nervousness [None]
  - Muscle fatigue [None]
  - Muscle tightness [None]
  - Skin discolouration [None]
  - Blood pressure increased [None]
  - Rash macular [None]

NARRATIVE: CASE EVENT DATE: 20190201
